FAERS Safety Report 6889257-5 (Version None)
Quarter: 2010Q3

REPORT INFORMATION
  Report Type: 
  Country: None (occurrence: None)
  Receive Date: 20100730
  Receipt Date: 20080121
  Transmission Date: 20110219
  Serious: No
  Sender: FDA-Public Use
  Company Number: US-PFIZER INC-2006040385

PATIENT
  Sex: Female
  Weight: 77.11 kg

DRUGS (2)
  1. LIPITOR [Suspect]
     Indication: BLOOD CHOLESTEROL INCREASED
     Dates: end: 20060101
  2. WARFARIN SODIUM [Concomitant]
     Route: 065

REACTIONS (2)
  - ALOPECIA [None]
  - FEELING ABNORMAL [None]
